FAERS Safety Report 5305645-2 (Version None)
Quarter: 2007Q2

REPORT INFORMATION
  Report Type: 
  Country: None (occurrence: None)
  Receive Date: 20070419
  Receipt Date: 20070419
  Transmission Date: 20071010
  Serious: Yes (Hospitalization)
  Sender: FDA-Public Use
  Company Number: None

PATIENT
  Age: 87 Year
  Sex: Female
  Weight: 88 kg

DRUGS (1)
  1. LUNESTA [Suspect]
     Indication: SELF-MEDICATION
     Dosage: PO
     Route: 048
     Dates: start: 20070417, end: 20070417

REACTIONS (7)
  - AMNESIA [None]
  - IMPAIRED DRIVING ABILITY [None]
  - INJURY [None]
  - LOSS OF CONSCIOUSNESS [None]
  - ROAD TRAFFIC ACCIDENT [None]
  - SELF-MEDICATION [None]
  - STERNAL FRACTURE [None]
